FAERS Safety Report 14613301 (Version 1)
Quarter: 2018Q1

REPORT INFORMATION
  Report Type: Spontaneous
  Country: IN (occurrence: IN)
  Receive Date: 20180308
  Receipt Date: 20180308
  Transmission Date: 20180509
  Serious: Yes (Life-Threatening, Hospitalization)
  Sender: FDA-Public Use
  Company Number: PHHY2018IN038472

PATIENT
  Age: 42 Year
  Sex: Female
  Weight: 45.7 kg

DRUGS (14)
  1. DELAMANID [Suspect]
     Active Substance: DELAMANID
     Indication: TUBERCULOSIS
     Dosage: 100 MG, BID
     Route: 048
     Dates: start: 20170817, end: 20170917
  2. CYCLOSERINE. [Suspect]
     Active Substance: CYCLOSERINE
     Dosage: 250 MG, BID
     Route: 048
     Dates: start: 20170921
  3. LINEZOLID. [Suspect]
     Active Substance: LINEZOLID
     Indication: PULMONARY TUBERCULOSIS
     Dosage: 600 MG, QOD
     Route: 048
     Dates: start: 20170817, end: 20170917
  4. LINEZOLID. [Suspect]
     Active Substance: LINEZOLID
     Dosage: 600 MG, QOD
     Route: 048
     Dates: start: 20170921
  5. IMIPENEM [Suspect]
     Active Substance: IMIPENEM
     Dosage: 1 G, BID
     Route: 042
     Dates: start: 20170921
  6. CLOFAZIMINE [Suspect]
     Active Substance: CLOFAZIMINE
     Indication: PULMONARY TUBERCULOSIS
     Dosage: 100 MG, QD
     Route: 048
     Dates: start: 20170817, end: 20170917
  7. DELAMANID [Suspect]
     Active Substance: DELAMANID
     Dosage: 100 MG, BID
     Route: 048
     Dates: start: 20170921
  8. CYCLOSERINE. [Suspect]
     Active Substance: CYCLOSERINE
     Indication: PULMONARY TUBERCULOSIS
     Dosage: 250 MG, BID
     Route: 048
     Dates: start: 20170817, end: 20170917
  9. IMIPENEM [Suspect]
     Active Substance: IMIPENEM
     Indication: PULMONARY TUBERCULOSIS
     Dosage: 1 G, BID
     Route: 042
     Dates: start: 20170817, end: 20170917
  10. AMOXCLAV [Suspect]
     Active Substance: AMOXICILLIN\CLAVULANIC ACID
     Dosage: 625 MG, TID
     Route: 065
     Dates: start: 20170921
  11. CLOFAZIMINE [Suspect]
     Active Substance: CLOFAZIMINE
     Dosage: 100 MG, QD
     Route: 048
     Dates: start: 20170921
  12. BEDAQUILINE [Suspect]
     Active Substance: BEDAQUILINE
     Dosage: 150 MG, TID
     Route: 065
     Dates: start: 20170921
  13. BEDAQUILINE [Suspect]
     Active Substance: BEDAQUILINE
     Indication: PULMONARY TUBERCULOSIS
     Dosage: 150 MG, TID
     Route: 065
     Dates: start: 20170828, end: 20170917
  14. AMOXCLAV [Suspect]
     Active Substance: AMOXICILLIN\CLAVULANIC ACID
     Indication: PULMONARY TUBERCULOSIS
     Dosage: 625 MG, TID
     Route: 065
     Dates: start: 20170817, end: 20170917

REACTIONS (2)
  - Electrocardiogram QT prolonged [Recovered/Resolved]
  - Seizure [Recovered/Resolved]

NARRATIVE: CASE EVENT DATE: 20170917
